FAERS Safety Report 4440075-7 (Version None)
Quarter: 2004Q3

REPORT INFORMATION
  Report Type: 
  Country: None (occurrence: None)
  Receive Date: 20040902
  Receipt Date: 20040831
  Transmission Date: 20050211
  Serious: Yes (Hospitalization)
  Sender: FDA-Public Use
  Company Number: 001#1#2004-00177

PATIENT
  Age: 29 Year
  Sex: Female

DRUGS (1)
  1. NARAMIG [Suspect]
     Indication: MIGRAINE
     Dosage: .5TAB SINGLE DOSE
     Route: 048
     Dates: start: 20040822, end: 20040822

REACTIONS (1)
  - RHABDOMYOLYSIS [None]
